FAERS Safety Report 19635937 (Version 1)
Quarter: 2021Q3

REPORT INFORMATION
  Report Type: Spontaneous
  Country: US (occurrence: US)
  Receive Date: 20210729
  Receipt Date: 20210729
  Transmission Date: 20211014
  Serious: Yes (Life-Threatening, Hospitalization, Other)
  Sender: FDA-Public Use
  Company Number: US-GLAXOSMITHKLINE-US2021GSK159900

PATIENT
  Age: 22 Year
  Sex: Female

DRUGS (1)
  1. LAMOTRIGINE. [Suspect]
     Active Substance: LAMOTRIGINE
     Indication: BIPOLAR DISORDER
     Dosage: UNK

REACTIONS (14)
  - Dysphagia [Recovered/Resolved]
  - Eating disorder [Recovered/Resolved]
  - Genital swelling [Recovered/Resolved]
  - Papule [Recovered/Resolved]
  - Blister [Recovered/Resolved]
  - Rash [Recovered/Resolved]
  - Rash pruritic [Recovered/Resolved]
  - SJS-TEN overlap [Recovered/Resolved]
  - Eye pain [Recovered/Resolved]
  - Macule [Recovered/Resolved]
  - Dermatitis [Recovered/Resolved]
  - Pain of skin [Not Recovered/Not Resolved]
  - Photosensitivity reaction [Not Recovered/Not Resolved]
  - Dysuria [Recovered/Resolved]
